FAERS Safety Report 4526492-5 (Version None)
Quarter: 2004Q4

REPORT INFORMATION
  Report Type: 
  Country: None (occurrence: None)
  Receive Date: 20041214
  Receipt Date: 20041206
  Transmission Date: 20050328
  Serious: Yes (Death)
  Sender: FDA-Public Use
  Company Number: US-BRISTOL-MYERS SQUIBB COMPANY-12788147

PATIENT
  Age: 87 Year
  Sex: Female

DRUGS (1)
  1. HYDREA [Suspect]

REACTIONS (1)
  - DEATH [None]
